FAERS Safety Report 15864486 (Version 2)
Quarter: 2021Q1

REPORT INFORMATION
  Report Type: Report from Study
  Country: US (occurrence: US)
  Receive Date: 20190124
  Receipt Date: 20210220
  Transmission Date: 20210419
  Serious: Yes (Hospitalization)
  Sender: FDA-Public Use
  Company Number: US-SHIRE-US201901807

PATIENT
  Age: 51 Year
  Sex: Female
  Weight: 108.84 kg

DRUGS (19)
  1. ICATIBANT [Suspect]
     Active Substance: ICATIBANT ACETATE
     Indication: IMMUNE SYSTEM DISORDER
     Dosage: 30 MILLIGRAM
     Route: 058
     Dates: start: 20131106
  2. CINRYZE [Suspect]
     Active Substance: HUMAN C1-ESTERASE INHIBITOR
     Indication: IMMUNE SYSTEM DISORDER
     Dosage: 1000 INTERNATIONAL UNIT, 3X A WEEK
     Route: 042
     Dates: start: 20130213
  3. EPINEPHRINE. [Concomitant]
     Active Substance: EPINEPHRINE
     Indication: PRODUCT USED FOR UNKNOWN INDICATION
  4. HEPARIN [Concomitant]
     Active Substance: HEPARIN SODIUM
     Indication: PRODUCT USED FOR UNKNOWN INDICATION
  5. MULTIVITAMIN [Concomitant]
     Active Substance: VITAMINS
     Indication: PRODUCT USED FOR UNKNOWN INDICATION
  6. EPIPEN [Concomitant]
     Active Substance: EPINEPHRINE
     Indication: PRODUCT USED FOR UNKNOWN INDICATION
  7. HAEGARDA [Concomitant]
     Active Substance: HUMAN C1-ESTERASE INHIBITOR
     Indication: PRODUCT USED FOR UNKNOWN INDICATION
  8. ICATIBANT [Suspect]
     Active Substance: ICATIBANT ACETATE
     Indication: IMMUNE SYSTEM DISORDER
     Dosage: 30 MILLIGRAM
     Route: 058
     Dates: start: 20131106
  9. TYLENOL [Concomitant]
     Active Substance: ACETAMINOPHEN
     Indication: PRODUCT USED FOR UNKNOWN INDICATION
  10. ICATIBANT [Suspect]
     Active Substance: ICATIBANT ACETATE
     Indication: HYPERTENSION
     Dosage: 30 MILLIGRAM
     Route: 058
     Dates: start: 20130116
  11. SODIUM CHLORIDE. [Concomitant]
     Active Substance: SODIUM CHLORIDE
     Indication: PRODUCT USED FOR UNKNOWN INDICATION
  12. AMLODIPINE [Concomitant]
     Active Substance: AMLODIPINE BESYLATE
     Indication: PRODUCT USED FOR UNKNOWN INDICATION
  13. CINRYZE [Suspect]
     Active Substance: HUMAN C1-ESTERASE INHIBITOR
     Indication: IMMUNE SYSTEM DISORDER
     Dosage: 1000 INTERNATIONAL UNIT, 3X A WEEK
     Route: 042
     Dates: start: 20130213
  14. CINRYZE [Suspect]
     Active Substance: HUMAN C1-ESTERASE INHIBITOR
     Indication: IMMUNE SYSTEM DISORDER
     Dosage: 1000 INTERNATIONAL UNIT, 3X A WEEK
     Route: 042
     Dates: start: 20130213
  15. STERILE WATER [Concomitant]
     Active Substance: WATER
     Indication: PRODUCT USED FOR UNKNOWN INDICATION
  16. ZYRTEC [Concomitant]
     Active Substance: CETIRIZINE HYDROCHLORIDE
     Indication: PRODUCT USED FOR UNKNOWN INDICATION
  17. VITAMIN D [Concomitant]
     Active Substance: VITAMIN D NOS
     Indication: PRODUCT USED FOR UNKNOWN INDICATION
  18. NORMAL SALINE [Concomitant]
     Active Substance: SODIUM CHLORIDE
     Indication: PRODUCT USED FOR UNKNOWN INDICATION
  19. ICATIBANT [Suspect]
     Active Substance: ICATIBANT ACETATE
     Indication: HYPERTENSION
     Dosage: 30 MILLIGRAM
     Route: 058
     Dates: start: 20130116

REACTIONS (2)
  - Hereditary angioedema [Unknown]
  - Jugular vein thrombosis [Unknown]

NARRATIVE: CASE EVENT DATE: 20190107
